FAERS Safety Report 8457557 (Version 2)
Quarter: 2013Q1

REPORT INFORMATION
  Report Type: Spontaneous
  Country: US (occurrence: US)
  Receive Date: 20120314
  Receipt Date: 20130320
  Transmission Date: 20140127
  Serious: No
  Sender: FDA-Public Use
  Company Number: US-PFIZER INC-2012063739

PATIENT
  Age: 61 Year
  Sex: Female
  Weight: 106 kg

DRUGS (12)
  1. LIPITOR [Suspect]
     Indication: BLOOD CHOLESTEROL INCREASED
     Dosage: UNK
     Route: 048
  2. METFORMIN HCL [Suspect]
     Indication: DIABETES MELLITUS
     Dosage: 500 MG, 2X/DAY
     Route: 048
  3. FLUOXETINE HCL [Suspect]
     Indication: DEPRESSION
     Dosage: 40 MG, DAILY
     Route: 048
  4. FLUOXETINE HCL [Suspect]
     Indication: ANXIETY
  5. DIAZEPAM [Suspect]
     Indication: DEPRESSION
     Dosage: 5 MG, 2X/DAY
     Route: 048
  6. DIAZEPAM [Suspect]
     Indication: ANXIETY
  7. ZOLPIDEM TARTRATE [Suspect]
     Indication: SLEEP DISORDER
     Dosage: 10 MG, DAILY
     Route: 048
  8. PREDNISONE [Suspect]
     Indication: COUGH
     Dosage: UNK
  9. ALBUTEROL [Suspect]
     Indication: ASTHMA
     Dosage: UNK
     Route: 065
  10. ALBUTEROL SULFATE [Suspect]
     Indication: ASTHMA
     Dosage: UNK, AS NEEDED
     Route: 065
  11. SINGULAIR [Suspect]
     Indication: ASTHMA
     Dosage: 10 MG, DAILY (AT NIGHT )
     Route: 048
  12. INDOMETHACIN [Suspect]
     Indication: GOUT
     Dosage: 50 MG, AS NEEDED IN EVERY 8 TO 12 HOURS
     Route: 048

REACTIONS (1)
  - Muscle spasms [Not Recovered/Not Resolved]
